FAERS Safety Report 10195774 (Version 1)
Quarter: 2014Q2

REPORT INFORMATION
  Report Type: Spontaneous
  Country: US (occurrence: None)
  Receive Date: 20140522
  Receipt Date: 20140522
  Transmission Date: 20141212
  Serious: Yes (Life-Threatening, Hospitalization, Disabling)
  Sender: FDA-Public Use
  Company Number: None

PATIENT
  Age: 63 Year
  Sex: Male
  Weight: 114.4 kg

DRUGS (1)
  1. AMOXICILLIN/CLAVULANATE [Suspect]
     Dosage: MG, BID, PO
     Route: 048
     Dates: start: 20140215, end: 20140225

REACTIONS (2)
  - Renal failure acute [None]
  - Drug reaction with eosinophilia and systemic symptoms [None]
